FAERS Safety Report 8911431 (Version 1)
Quarter: 2012Q4

REPORT INFORMATION
  Report Type: 
  Country: US (occurrence: US)
  Receive Date: 20121115
  Receipt Date: 20121115
  Transmission Date: 20130627
  Serious: No
  Sender: FDA-Public Use
  Company Number: US-ENDO PHARMACEUTICALS INC.-OPCR20121437

PATIENT
  Sex: Male

DRUGS (4)
  1. OPANA ER [Suspect]
     Indication: COMPLEX REGIONAL PAIN SYNDROME
     Route: 048
     Dates: start: 201204, end: 2012
  2. OPANA ER [Suspect]
     Route: 048
     Dates: start: 201204, end: 2012
  3. OPANA ER [Concomitant]
     Indication: COMPLEX REGIONAL PAIN SYNDROME
     Route: 048
     Dates: end: 201204
  4. OPANA ER [Concomitant]
     Route: 048
     Dates: end: 201204

REACTIONS (6)
  - Gastrointestinal obstruction [Recovered/Resolved]
  - Withdrawal syndrome [Unknown]
  - Medication residue [Recovered/Resolved]
  - Constipation [Unknown]
  - Drug effect decreased [Recovered/Resolved]
  - Drug ineffective [Unknown]
